FAERS Safety Report 4885302-7 (Version None)
Quarter: 2005Q4

REPORT INFORMATION
  Report Type: 
  Country: None (occurrence: None)
  Receive Date: 20051220
  Receipt Date: 20051028
  Transmission Date: 20060501
  Serious: Yes (Other)
  Sender: FDA-Public Use
  Company Number: 423164

PATIENT
  Sex: Female

DRUGS (14)
  1. BONIVA [Suspect]
     Dosage: ORAL
     Route: 048
     Dates: start: 20051027
  2. PROTONIX [Concomitant]
  3. DONNATAL [Concomitant]
  4. THEO-24 (THEOPHYLLINE) [Concomitant]
  5. ZYRTEC [Concomitant]
  6. PREDNISONE [Concomitant]
  7. LASIX [Concomitant]
  8. MICRO-K (POTASSIUM CHLORIDE) [Concomitant]
  9. FEMARA [Concomitant]
  10. CENTRUM SILVER (MINERALS NOS/MULTIVITAMIN NOS) [Concomitant]
  11. CARDIZEM [Concomitant]
  12. ATROVENT [Concomitant]
  13. MAXAIR [Concomitant]
  14. NEBULIZER SALINE (SODIUM CHLORIDE) [Concomitant]

REACTIONS (1)
  - ARTHRALGIA [None]
